FAERS Safety Report 18529331 (Version 3)
Quarter: 2020Q4

REPORT INFORMATION
  Report Type: Spontaneous
  Country: JP (occurrence: JP)
  Receive Date: 20201120
  Receipt Date: 20201204
  Transmission Date: 20210114
  Serious: Yes (Other)
  Sender: FDA-Public Use
  Company Number: JP-ALLERGAN-2044899US

PATIENT

DRUGS (1)
  1. BOTULINUM TOXIN TYPE A UNK [Suspect]
     Active Substance: BOTULINUM TOXIN TYPE A
     Indication: NERVE BLOCK
     Dosage: UNK, SINGLE
     Route: 030

REACTIONS (1)
  - Injury corneal [Unknown]

NARRATIVE: CASE EVENT DATE: 2018
